FAERS Safety Report 16952250 (Version 2)
Quarter: 2020Q2

REPORT INFORMATION
  Report Type: Spontaneous
  Country: US (occurrence: US)
  Receive Date: 20191023
  Receipt Date: 20200427
  Transmission Date: 20200713
  Serious: Yes (Hospitalization, Other)
  Sender: FDA-Public Use
  Company Number: US-SUPERNUS PHARMACEUTICALS, INC.-2019SUP00473

PATIENT
  Age: 51 Year
  Sex: Female

DRUGS (3)
  1. TROKENDI XR [Suspect]
     Active Substance: TOPIRAMATE
     Dosage: 50 MG
     Dates: start: 202002
  2. TROKENDI XR [Suspect]
     Active Substance: TOPIRAMATE
     Indication: HEADACHE
     Dosage: 25 MG
     Dates: start: 2018, end: 2019
  3. TROKENDI XR [Suspect]
     Active Substance: TOPIRAMATE
     Indication: SEIZURE
     Dosage: 25 MG
     Dates: start: 201910, end: 202002

REACTIONS (3)
  - Migraine [Not Recovered/Not Resolved]
  - Seizure [Unknown]
  - Brain neoplasm [Unknown]

NARRATIVE: CASE EVENT DATE: 201902
